FAERS Safety Report 9247494 (Version 1)
Quarter: 2013Q2

REPORT INFORMATION
  Report Type: Spontaneous
  Country: US (occurrence: US)
  Receive Date: 20130423
  Receipt Date: 20130423
  Transmission Date: 20140414
  Serious: Yes (Other)
  Sender: FDA-Public Use
  Company Number: US-ASTELLAS-2013US004256

PATIENT
  Sex: Female
  Weight: 80 kg

DRUGS (6)
  1. VESICARE [Suspect]
     Indication: HYPERTONIC BLADDER
     Dosage: 10 MG, UID/QD
     Route: 048
  2. PLAVIX [Concomitant]
     Indication: CARDIAC DISORDER
     Dosage: 75 MG, UID/QD
     Route: 048
  3. LIPITOR [Concomitant]
     Indication: BLOOD CHOLESTEROL
     Dosage: 20 MG, UID/QD
     Route: 048
  4. AMARYL [Concomitant]
     Indication: BLOOD GLUCOSE ABNORMAL
     Dosage: 0.5 MG, UID/QD
     Route: 048
  5. ASPIRIN [Concomitant]
     Indication: CARDIAC DISORDER
     Dosage: 325 MG, UID/QD
     Route: 048
  6. BYETTA [Concomitant]
     Indication: BLOOD GLUCOSE ABNORMAL
     Dosage: 5 UG, BID
     Route: 065

REACTIONS (2)
  - Coronary arterial stent insertion [Unknown]
  - Cardiac pacemaker insertion [Unknown]
